FAERS Safety Report 19683047 (Version 14)
Quarter: 2023Q2

REPORT INFORMATION
  Report Type: Spontaneous
  Country: CA (occurrence: CA)
  Receive Date: 20210811
  Receipt Date: 20230503
  Transmission Date: 20230722
  Serious: Yes (Other)
  Sender: FDA-Public Use
  Company Number: CA-CELLTRION INC.-2017CA015150

PATIENT

DRUGS (47)
  1. INFLECTRA [Suspect]
     Active Substance: INFLIXIMAB-DYYB
     Indication: Colitis ulcerative
     Dosage: 443 MG (443 MG (5MG/KG), AT 0, 2, 6 WEEKS THEN EVERY 8 WEEKS)
     Route: 042
     Dates: start: 20171006
  2. INFLECTRA [Suspect]
     Active Substance: INFLIXIMAB-DYYB
     Dosage: 5 MG/KG, Q 0, 2, 6 WEEKS THEN EVERY 8 WEEKS
     Route: 042
     Dates: start: 20171006, end: 20190404
  3. INFLECTRA [Suspect]
     Active Substance: INFLIXIMAB-DYYB
     Dosage: 4.7 MG/KG (4.7 MG/KG, EVERY 0, 2, 6 WEEKS, THEN EVERY 8 WEEKS)
     Route: 042
  4. INFLECTRA [Suspect]
     Active Substance: INFLIXIMAB-DYYB
     Dosage: 5 MG/KG (5 MG/KG EVERY 0, 2, 6 WEEKS THEN EVERY 8 WEEKS)
     Route: 042
     Dates: start: 20180503
  5. INFLECTRA [Suspect]
     Active Substance: INFLIXIMAB-DYYB
     Dosage: 5 MG/KG (5 MG/KG EVERY 0, 2, 6 WEEKS THEN EVERY 8 WEEKS)
     Route: 042
     Dates: start: 20181018
  6. INFLECTRA [Suspect]
     Active Substance: INFLIXIMAB-DYYB
     Dosage: 5 MG/KG (5 MG/KG EVERY 0, 2, 6 WEEKS THEN EVERY 8 WEEKS)
     Route: 042
     Dates: start: 20181213
  7. INFLECTRA [Suspect]
     Active Substance: INFLIXIMAB-DYYB
     Dosage: 5 MG/KG (5 MG/KG EVERY 0, 2, 6 WEEKS THEN EVERY 8 WEEKS)
     Route: 042
     Dates: start: 20190208
  8. INFLECTRA [Suspect]
     Active Substance: INFLIXIMAB-DYYB
     Dosage: 443 MG (443 MG (5MG/KG), AT 0, 2, 6 WEEKS THEN EVERY 8 WEEKS)
     Route: 042
     Dates: start: 20190404
  9. INFLECTRA [Suspect]
     Active Substance: INFLIXIMAB-DYYB
     Dosage: 5 MG/KG (5 MG/KG, AT 0, 2, 6 WEEKS, THEN EVERY 8 WEEKS)
     Route: 042
     Dates: start: 20190502
  10. INFLECTRA [Suspect]
     Active Substance: INFLIXIMAB-DYYB
     Dosage: 10 MG/KG (10 MG/KG EVERY 8 WEEKS)
     Route: 042
     Dates: start: 20190502, end: 20211130
  11. INFLECTRA [Suspect]
     Active Substance: INFLIXIMAB-DYYB
     Dosage: 10 MG/KG (10 MG/KG WEEK 4 THEN EVERY 8 WEEKS)
     Route: 042
     Dates: start: 20190627
  12. INFLECTRA [Suspect]
     Active Substance: INFLIXIMAB-DYYB
     Dosage: 10 MG/KG (10 MG/KG WEEK 4 THEN EVERY 8 WEEKS)
     Route: 042
     Dates: start: 20190822
  13. INFLECTRA [Suspect]
     Active Substance: INFLIXIMAB-DYYB
     Dosage: 10 MG/KG (10 MG/KG EVERY 8 WEEKS)
     Route: 042
     Dates: start: 20191212
  14. INFLECTRA [Suspect]
     Active Substance: INFLIXIMAB-DYYB
     Dosage: 10 MG/KG (10 MG/KG EVERY 8 WEEKS)
     Route: 042
     Dates: start: 20200204
  15. INFLECTRA [Suspect]
     Active Substance: INFLIXIMAB-DYYB
     Dosage: 10 MG/KG (10 MG/KG EVERY 8 WEEKS)
     Route: 042
     Dates: start: 20200414
  16. INFLECTRA [Suspect]
     Active Substance: INFLIXIMAB-DYYB
     Dosage: 10 MG/KG (10 MG/KG EVERY 8 WEEKS)
     Route: 042
     Dates: start: 20200414
  17. INFLECTRA [Suspect]
     Active Substance: INFLIXIMAB-DYYB
     Dosage: 10 MG/KG (10 MG/KG EVERY 8 WEEKS)
     Route: 042
     Dates: start: 20200414
  18. INFLECTRA [Suspect]
     Active Substance: INFLIXIMAB-DYYB
     Dosage: 10 MG/KG (10 MG/KG EVERY 8 WEEKS)
     Route: 042
     Dates: start: 20200609
  19. INFLECTRA [Suspect]
     Active Substance: INFLIXIMAB-DYYB
     Dosage: 10 MG/KG (10 MG/KG EVERY 8 WEEKS)
     Route: 042
     Dates: start: 20200804
  20. INFLECTRA [Suspect]
     Active Substance: INFLIXIMAB-DYYB
     Dosage: 10 MG/KG (10 MG/KG EVERY 8 WEEKS)
     Route: 042
     Dates: start: 20200929
  21. INFLECTRA [Suspect]
     Active Substance: INFLIXIMAB-DYYB
     Dosage: 1000 MG (1000 MG (PRESCRIBED 10 MG/KG EVERY 8 WEEKS))
     Route: 042
     Dates: start: 20201126
  22. INFLECTRA [Suspect]
     Active Substance: INFLIXIMAB-DYYB
     Dosage: 10 MG/KG (10 MG/KG EVERY 8 WEEKS)
     Route: 042
     Dates: start: 20210118
  23. INFLECTRA [Suspect]
     Active Substance: INFLIXIMAB-DYYB
     Dosage: 10 MG/KG (10 MG/KG EVERY 8 WEEKS)
     Route: 042
     Dates: start: 20210316
  24. INFLECTRA [Suspect]
     Active Substance: INFLIXIMAB-DYYB
     Dosage: 10 MG/KG (10 MG/KG EVERY 8 WEEKS)
     Route: 042
     Dates: start: 20210517
  25. INFLECTRA [Suspect]
     Active Substance: INFLIXIMAB-DYYB
     Dosage: 10 MG/KG (10 MG/KG EVERY 8 WEEKS)
     Route: 042
     Dates: start: 20210706
  26. INFLECTRA [Suspect]
     Active Substance: INFLIXIMAB-DYYB
     Dosage: 10 MG/KG (10 MG/KG EVERY 8 WEEKS)
     Route: 042
     Dates: start: 20210831
  27. INFLECTRA [Suspect]
     Active Substance: INFLIXIMAB-DYYB
     Dosage: 10 MG/KG (10 MG/KG EVERY 8 WEEKS)
     Route: 042
     Dates: start: 20211026
  28. INFLECTRA [Suspect]
     Active Substance: INFLIXIMAB-DYYB
     Dosage: 10 MG/KG (10 MG/KG EVERY 8 WEEKS)
     Route: 042
     Dates: start: 20211221
  29. INFLECTRA [Suspect]
     Active Substance: INFLIXIMAB-DYYB
     Dosage: 10 MG/KG (10 MG/KG EVERY 8 WEEKS)
     Route: 042
     Dates: start: 20220411
  30. INFLECTRA [Suspect]
     Active Substance: INFLIXIMAB-DYYB
     Dosage: 10 MG/KG (10 MG/KG EVERY 8 WEEKS)
     Route: 042
     Dates: start: 20220606
  31. INFLECTRA [Suspect]
     Active Substance: INFLIXIMAB-DYYB
     Dosage: 10 MG/KG (10 MG/KG EVERY 8 WEEKS)
     Route: 042
     Dates: start: 20220803
  32. INFLECTRA [Suspect]
     Active Substance: INFLIXIMAB-DYYB
     Dosage: 10 MG/KG (10 MG/KG EVERY 8 WEEKS)
     Route: 042
     Dates: start: 20220803
  33. INFLECTRA [Suspect]
     Active Substance: INFLIXIMAB-DYYB
     Dosage: 10 MG/KG (10 MG/KG EVERY 8 WEEKS)
     Route: 042
     Dates: start: 20221005
  34. INFLECTRA [Suspect]
     Active Substance: INFLIXIMAB-DYYB
     Dosage: 10 MG/KG (10 MG/KG EVERY 8 WEEKS)
     Route: 042
     Dates: start: 20221130
  35. INFLECTRA [Suspect]
     Active Substance: INFLIXIMAB-DYYB
     Dosage: 10 MG/KG (970MG), Q 0, 2, 6 WEEKS, THEN Q 8 WEEKS
     Route: 042
     Dates: start: 20230125
  36. INFLECTRA [Suspect]
     Active Substance: INFLIXIMAB-DYYB
     Dosage: 10 MG/KG, INDUCTION W0, 2, 6 WEEKS, THEN Q8 WEEKS
     Route: 042
     Dates: start: 20230125, end: 20230309
  37. INFLECTRA [Suspect]
     Active Substance: INFLIXIMAB-DYYB
     Dosage: 10 MG/KG (970MG), REINDUCTION W2
     Route: 042
     Dates: start: 20230207
  38. INFLECTRA [Suspect]
     Active Substance: INFLIXIMAB-DYYB
     Dosage: 10 MG/KG (970MG), REINDUCTION W2
     Route: 042
     Dates: start: 20230207
  39. INFLECTRA [Suspect]
     Active Substance: INFLIXIMAB-DYYB
     Dosage: 10 MG/KG (970MG), REINDUCTION W2
     Route: 042
     Dates: start: 20230207
  40. INFLECTRA [Suspect]
     Active Substance: INFLIXIMAB-DYYB
     Dosage: 10 MG/KG (970MG), REINDUCTION W2
     Route: 042
     Dates: start: 20230207
  41. INFLECTRA [Suspect]
     Active Substance: INFLIXIMAB-DYYB
     Dosage: 10 MG/KG (970MG), REINDUCTION W2
     Route: 042
     Dates: start: 20230207
  42. INFLECTRA [Suspect]
     Active Substance: INFLIXIMAB-DYYB
     Dosage: 960 MG (10 MG/KG) ON WEEK 6 (REINDUCTION)
     Route: 042
     Dates: start: 20230309
  43. INFLECTRA [Suspect]
     Active Substance: INFLIXIMAB-DYYB
     Dosage: 960 MG (10 MG/KG) ON WEEK 6 (REINDUCTION)
     Route: 042
     Dates: start: 20230309
  44. IMURAN [Concomitant]
     Active Substance: AZATHIOPRINE
     Dosage: 1 DF, DOSAGE IS UNKNOWN
     Route: 065
  45. MESALAMINE [Concomitant]
     Active Substance: MESALAMINE
     Dosage: 1 DF, DOSAGE IS UNKNOWN
     Route: 065
  46. PENICILLIN [Concomitant]
     Active Substance: PENICILLIN
     Dosage: UNK
  47. PREDNISONE [Concomitant]
     Active Substance: PREDNISONE
     Dosage: 1 DF, DOSAGE IS UNKNOWN
     Route: 065

REACTIONS (29)
  - Heart rate decreased [Unknown]
  - Colitis ulcerative [Unknown]
  - Haemorrhage [Unknown]
  - Therapeutic product effect incomplete [Unknown]
  - Off label use [Unknown]
  - Off label use [Unknown]
  - Off label use [Unknown]
  - Intentional product use issue [Unknown]
  - Inappropriate schedule of product administration [Unknown]
  - Body temperature fluctuation [Unknown]
  - Heart rate irregular [Unknown]
  - Blood pressure fluctuation [Unknown]
  - Sinusitis [Unknown]
  - Dizziness [Recovering/Resolving]
  - Headache [Recovering/Resolving]
  - Oropharyngeal pain [Recovering/Resolving]
  - Nasopharyngitis [Recovered/Resolved]
  - Pharyngitis streptococcal [Not Recovered/Not Resolved]
  - Scarlet fever [Unknown]
  - Poor venous access [Recovered/Resolved]
  - Condition aggravated [Not Recovered/Not Resolved]
  - Presyncope [Recovered/Resolved]
  - Pyrexia [Recovered/Resolved]
  - Rhinorrhoea [Recovered/Resolved]
  - Cough [Recovered/Resolved]
  - Toothache [Unknown]
  - Arthralgia [Unknown]
  - Drug level below therapeutic [Unknown]
  - Pain [Unknown]

NARRATIVE: CASE EVENT DATE: 20180503
